FAERS Safety Report 23335888 (Version 1)
Quarter: 2023Q4

REPORT INFORMATION
  Report Type: Spontaneous
  Country: US (occurrence: US)
  Receive Date: 20231225
  Receipt Date: 20231225
  Transmission Date: 20240109
  Serious: No
  Sender: FDA-Public Use
  Company Number: US-SA-SAC20231215000476

PATIENT
  Age: 73 Year
  Sex: Male

DRUGS (1)
  1. DUPIXENT [Suspect]
     Active Substance: DUPILUMAB
     Indication: Nasal polyps
     Dosage: DOSE: 300 MG FREQUENCY: ONCE VERY 2 WEEKS
     Route: 058
     Dates: start: 20230815, end: 20230830

REACTIONS (3)
  - Lung disorder [Unknown]
  - Urticaria [Unknown]
  - Swelling face [Unknown]

NARRATIVE: CASE EVENT DATE: 20230818
